FAERS Safety Report 15488801 (Version 6)
Quarter: 2023Q4

REPORT INFORMATION
  Report Type: Spontaneous
  Country: AT (occurrence: AT)
  Receive Date: 20181011
  Receipt Date: 20231130
  Transmission Date: 20240109
  Serious: Yes (Hospitalization, Other)
  Sender: FDA-Public Use
  Company Number: AT-BRISTOL-MYERS SQUIBB COMPANY-BMS-2018-090269

PATIENT
  Age: 39 Year
  Sex: Female

DRUGS (13)
  1. EFAVIRENZ [Suspect]
     Active Substance: EFAVIRENZ
     Indication: Antiretroviral therapy
     Dosage: 3RD AND 4TH THERAPY
  2. STAVUDINE [Suspect]
     Active Substance: STAVUDINE
     Indication: Antiretroviral therapy
     Dosage: 2ND THERAPY AND 3RD THERAPY
  3. DIDANOSINE [Suspect]
     Active Substance: DIDANOSINE
     Indication: Antiretroviral therapy
     Dosage: UNK
  4. ZIDOVUDINE [Suspect]
     Active Substance: ZIDOVUDINE
     Indication: Antiretroviral therapy
     Dosage: 4TH AND 5TH THERAPY
     Route: 048
  5. ZIDOVUDINE [Suspect]
     Active Substance: ZIDOVUDINE
  6. LOPINAVIR AND RITONAVIR [Suspect]
     Active Substance: LOPINAVIR\RITONAVIR
     Indication: Antiretroviral therapy
     Dosage: UNK
     Route: 048
  7. INDINAVIR\RITONAVIR [Suspect]
     Active Substance: INDINAVIR\RITONAVIR
     Indication: Antiretroviral therapy
     Dosage: UNK
  8. LAMIVUDINE [Suspect]
     Active Substance: LAMIVUDINE
     Indication: Antiretroviral therapy
     Dosage: 1ST,2 ND THERAPY, 4TH AND 5TH THERAPY
  9. ISENTRESS [Suspect]
     Active Substance: RALTEGRAVIR POTASSIUM
     Indication: HIV infection
     Dosage: UNK
     Route: 048
  10. ENFUVIRTIDE [Suspect]
     Active Substance: ENFUVIRTIDE
     Indication: HIV infection
     Dosage: UNK
     Route: 048
  11. LAMIVUDINE\ZIDOVUDINE [Suspect]
     Active Substance: LAMIVUDINE\ZIDOVUDINE
     Indication: HIV infection
     Dosage: UNK
     Route: 048
  12. PREZISTA [Concomitant]
     Active Substance: DARUNAVIR ETHANOLATE
     Indication: Product used for unknown indication
     Dosage: UNK
     Route: 048
  13. PENICILLIN V POTASSIUM [Concomitant]
     Active Substance: PENICILLIN V POTASSIUM
     Indication: HIV infection
     Route: 048

REACTIONS (5)
  - Acute stress disorder [Unknown]
  - Premature rupture of membranes [Recovered/Resolved]
  - Maternal exposure during pregnancy [Recovered/Resolved]
  - Live birth [Unknown]
  - Off label use [Unknown]
